FAERS Safety Report 25540810 (Version 2)
Quarter: 2025Q4

REPORT INFORMATION
  Report Type: Spontaneous
  Country: US (occurrence: US)
  Receive Date: 20250710
  Receipt Date: 20251024
  Transmission Date: 20260118
  Serious: No
  Sender: PHARMING GROUP
  Company Number: US-PHARMING-PHAUS2025000954

PATIENT

DRUGS (2)
  1. RUCONEST [Suspect]
     Active Substance: CONESTAT ALFA
     Indication: Angioedema
     Dosage: 4200 IU, TWICE WEEKLY
     Route: 042
     Dates: start: 202304
  2. RUCONEST [Suspect]
     Active Substance: CONESTAT ALFA
     Indication: Hereditary angioedema
     Dosage: 4200 IU, TWICE A WEEK
     Route: 042
     Dates: start: 202303

REACTIONS (2)
  - Product use in unapproved indication [Unknown]
  - Intentional product use issue [Unknown]
